FAERS Safety Report 19944962 (Version 1)
Quarter: 2021Q4

REPORT INFORMATION
  Report Type: Spontaneous
  Country: US (occurrence: US)
  Receive Date: 20211012
  Receipt Date: 20211012
  Transmission Date: 20220303
  Serious: No
  Sender: FDA-Public Use
  Company Number: US-BEH-2021136569

PATIENT
  Sex: Female

DRUGS (9)
  1. HIZENTRA [Suspect]
     Active Substance: HUMAN IMMUNOGLOBULIN G
     Indication: Immunodeficiency
     Dosage: 12 GRAM, QW
     Route: 058
     Dates: start: 20210824
  2. FEXOFENADINE HYDROCHLORIDE [Concomitant]
     Active Substance: FEXOFENADINE HYDROCHLORIDE
  3. BENADRYL [Concomitant]
     Active Substance: DIPHENHYDRAMINE HYDROCHLORIDE
  4. FEXOFENADINE HCL [Concomitant]
     Active Substance: FEXOFENADINE HYDROCHLORIDE
  5. CEFIXIME [Concomitant]
     Active Substance: CEFIXIME
  6. FLONASE [Concomitant]
     Active Substance: FLUTICASONE PROPIONATE
  7. PREVACID [Concomitant]
     Active Substance: LANSOPRAZOLE
  8. RITUXAN [Concomitant]
     Active Substance: RITUXIMAB
  9. ZOLOFT [Concomitant]
     Active Substance: SERTRALINE HYDROCHLORIDE

REACTIONS (2)
  - Fatigue [Unknown]
  - Injection site pain [Unknown]
